FAERS Safety Report 23799471 (Version 3)
Quarter: 2024Q2

REPORT INFORMATION
  Report Type: Spontaneous
  Country: GB (occurrence: GB)
  Receive Date: 20240430
  Receipt Date: 20240523
  Transmission Date: 20240716
  Serious: Yes (Hospitalization)
  Sender: FDA-Public Use
  Company Number: GB-MYLANLABS-2024M1038946

PATIENT
  Sex: Male

DRUGS (1)
  1. CLOZARIL [Suspect]
     Active Substance: CLOZAPINE
     Indication: Schizophrenia
     Dosage: UNK
     Route: 048
     Dates: start: 20040615, end: 20240313

REACTIONS (7)
  - Schizophrenia [Unknown]
  - Mental impairment [Unknown]
  - Sleep deficit [Unknown]
  - Decreased appetite [Unknown]
  - Depressed mood [Unknown]
  - Disturbance in attention [Unknown]
  - Treatment noncompliance [Unknown]
